FAERS Safety Report 4995246-8 (Version None)
Quarter: 2006Q2

REPORT INFORMATION
  Report Type: 
  Country: None (occurrence: None)
  Receive Date: 20060508
  Receipt Date: 20060425
  Transmission Date: 20061013
  Serious: Yes (Hospitalization, Disabling)
  Sender: FDA-Public Use
  Company Number: US-MERCK-0604USA04038

PATIENT
  Age: 42 Year
  Sex: Female
  Weight: 77 kg

DRUGS (8)
  1. VIOXX [Suspect]
     Indication: ARTHRITIS
     Route: 048
     Dates: start: 20011001, end: 20020601
  2. LIPITOR [Concomitant]
     Route: 065
  3. TYLENOL (CAPLET) [Concomitant]
     Route: 065
  4. VITAMINS (UNSPECIFIED) [Concomitant]
     Route: 065
  5. PEPCID [Concomitant]
     Route: 065
  6. LOPRESSOR [Concomitant]
     Route: 065
  7. ALTACE [Concomitant]
     Route: 065
  8. WELLBUTRIN [Concomitant]
     Route: 065

REACTIONS (2)
  - CARDIAC DISORDER [None]
  - MYOCARDIAL INFARCTION [None]
